FAERS Safety Report 7760496-4 (Version None)
Quarter: 2011Q3

REPORT INFORMATION
  Report Type: 
  Country: None (occurrence: None)
  Receive Date: 20110919
  Receipt Date: 20110906
  Transmission Date: 20111222
  Serious: Yes (Other)
  Sender: FDA-Public Use
  Company Number: FR-MYLANLABS-2011S1019077

PATIENT
  Age: 26 Year
  Sex: Female

DRUGS (7)
  1. VANCOMYCIN [Concomitant]
     Route: 065
  2. ESOMEPRAZOLE SODIUM [Interacting]
     Route: 065
  3. VORICONAZOLE [Suspect]
     Indication: ASPERGILLOSIS
     Route: 042
  4. METHADONE HCL [Interacting]
     Route: 048
  5. LEVOFLOXACIN [Concomitant]
     Route: 065
  6. IMIPENEM [Concomitant]
     Route: 065
  7. AMIKACIN [Concomitant]
     Route: 065

REACTIONS (3)
  - DRUG INTERACTION [None]
  - SUPRAVENTRICULAR EXTRASYSTOLES [None]
  - ARRHYTHMIA SUPRAVENTRICULAR [None]
